FAERS Safety Report 4761170-9 (Version None)
Quarter: 2005Q3

REPORT INFORMATION
  Report Type: 
  Country: None (occurrence: None)
  Receive Date: 20050906
  Receipt Date: 20050824
  Transmission Date: 20060218
  Serious: Yes (Other)
  Sender: FDA-Public Use
  Company Number: IT-BOEHRINGER INGELHEIM PHARMACEUTICALS, INC.-2005-DE-03386GD

PATIENT

DRUGS (2)
  1. NEVIRAPINE [Suspect]
     Indication: HIV TEST POSITIVE
  2. NUCLEOSIDE REVERSE TRANSCRIPTASE INHIBITORS [Suspect]
     Indication: HIV TEST POSITIVE

REACTIONS (1)
  - DRUG INEFFECTIVE [None]
